FAERS Safety Report 24927208 (Version 3)
Quarter: 2025Q2

REPORT INFORMATION
  Report Type: Report from Study
  Country: US (occurrence: US)
  Receive Date: 20250205
  Receipt Date: 20250515
  Transmission Date: 20250717
  Serious: Yes (Hospitalization)
  Sender: EMD SERONO INC
  Company Number: US-Merck Healthcare KGaA-2025004851

PATIENT
  Age: 54 Year
  Sex: Female

DRUGS (2)
  1. MAVENCLAD [Suspect]
     Active Substance: CLADRIBINE
     Indication: Multiple sclerosis
  2. MAVENCLAD [Suspect]
     Active Substance: CLADRIBINE

REACTIONS (6)
  - Dysphagia [Unknown]
  - Nausea [Unknown]
  - Abdominal pain [Unknown]
  - Blood potassium decreased [Unknown]
  - Seizure [Unknown]
  - Post procedural complication [Unknown]

NARRATIVE: CASE EVENT DATE: 20250123
